FAERS Safety Report 8578190-9 (Version None)
Quarter: 2012Q3

REPORT INFORMATION
  Report Type: 
  Country: None (occurrence: None)
  Receive Date: 20120808
  Receipt Date: 20120801
  Transmission Date: 20120928
  Serious: No
  Sender: FDA-Public Use
  Company Number: US-PFIZER INC-2012147424

PATIENT
  Age: 63 Year
  Sex: Female

DRUGS (1)
  1. NEURONTIN [Suspect]
     Dosage: 300 MG, 3X/DAY
     Dates: start: 20060101, end: 20110101

REACTIONS (2)
  - FALL [None]
  - DRUG HYPERSENSITIVITY [None]
